FAERS Safety Report 7079891-4 (Version None)
Quarter: 2010Q4

REPORT INFORMATION
  Report Type: 
  Country: None (occurrence: None)
  Receive Date: 20101102
  Receipt Date: 20101025
  Transmission Date: 20110411
  Serious: Yes (Other)
  Sender: FDA-Public Use
  Company Number: CHPA2010US16739

PATIENT
  Age: 59 Year
  Sex: Female

DRUGS (3)
  1. THERAFLU FLU AND SORE THROAT (NCH) [Suspect]
     Indication: INFLUENZA
     Dosage: 1 DF, Q8H (2 PACKETS / DAY)
     Route: 048
     Dates: start: 20101020, end: 20101023
  2. THERAFLU FLU AND SORE THROAT (NCH) [Suspect]
     Dosage: UNK DF, Q8H
     Route: 048
     Dates: start: 19850101, end: 19850101
  3. ASPIRIN [Concomitant]
     Dosage: UNK, UNK

REACTIONS (2)
  - BLOOD GLUCOSE INCREASED [None]
  - CONCOMITANT DISEASE AGGRAVATED [None]
